FAERS Safety Report 25727901 (Version 1)
Quarter: 2025Q3

REPORT INFORMATION
  Report Type: Spontaneous
  Country: CA (occurrence: CA)
  Receive Date: 20250826
  Receipt Date: 20250826
  Transmission Date: 20251021
  Serious: Yes (Death, Other)
  Sender: BRISTOL-MYERS SQUIBB COMPANY
  Company Number: CA-BRISTOL-MYERS SQUIBB COMPANY-2025-118209

PATIENT
  Age: 44 Year
  Sex: Female
  Weight: 97 kg

DRUGS (191)
  1. ORENCIA [Suspect]
     Active Substance: ABATACEPT
     Indication: Rheumatoid arthritis
     Route: 050
  2. ORENCIA [Suspect]
     Active Substance: ABATACEPT
     Route: 050
  3. ORENCIA [Suspect]
     Active Substance: ABATACEPT
  4. ORENCIA [Suspect]
     Active Substance: ABATACEPT
  5. ACETAMINOPHEN [Concomitant]
     Active Substance: ACETAMINOPHEN
     Indication: Rheumatoid arthritis
     Route: 050
  6. ACETAMINOPHEN [Concomitant]
     Active Substance: ACETAMINOPHEN
     Indication: Crohn^s disease
     Route: 050
  7. DICLOFENAC SODIUM;PARACETAMOL [Concomitant]
     Indication: Rheumatoid arthritis
     Route: 050
  8. DICLOFENAC SODIUM;PARACETAMOL [Concomitant]
  9. DICLOFENAC SODIUM;PARACETAMOL [Concomitant]
     Route: 050
  10. DICLOFENAC SODIUM;PARACETAMOL [Concomitant]
     Route: 050
  11. DICLOFENAC SODIUM;PARACETAMOL [Concomitant]
     Route: 050
  12. DICLOFENAC SODIUM;PARACETAMOL [Concomitant]
     Route: 050
  13. ACTEMRA [Concomitant]
     Active Substance: TOCILIZUMAB
     Indication: Rheumatoid arthritis
     Route: 050
  14. ACTEMRA [Concomitant]
     Active Substance: TOCILIZUMAB
     Route: 050
  15. ACTEMRA [Concomitant]
     Active Substance: TOCILIZUMAB
     Route: 050
  16. ACTEMRA [Concomitant]
     Active Substance: TOCILIZUMAB
     Route: 050
  17. ACTEMRA [Concomitant]
     Active Substance: TOCILIZUMAB
     Route: 050
  18. ACTEMRA [Concomitant]
     Active Substance: TOCILIZUMAB
     Route: 050
  19. ACTEMRA [Concomitant]
     Active Substance: TOCILIZUMAB
     Route: 050
  20. ADALIMUMAB [Concomitant]
     Active Substance: ADALIMUMAB
     Indication: Rheumatoid arthritis
  21. ADALIMUMAB [Concomitant]
     Active Substance: ADALIMUMAB
     Indication: Psoriatic arthropathy
     Route: 050
  22. ADALIMUMAB [Concomitant]
     Active Substance: ADALIMUMAB
     Route: 050
  23. ADVIL (MEFENAMIC ACID) [Concomitant]
     Active Substance: MEFENAMIC ACID
     Indication: Product used for unknown indication
  24. ALENDRONATE SODIUM [Concomitant]
     Active Substance: ALENDRONATE SODIUM
     Indication: Rheumatoid arthritis
     Route: 050
  25. ALENDRONATE SODIUM [Concomitant]
     Active Substance: ALENDRONATE SODIUM
     Route: 050
  26. ALENDRONATE SODIUM [Concomitant]
     Active Substance: ALENDRONATE SODIUM
     Route: 050
  27. ALENDRONATE SODIUM [Concomitant]
     Active Substance: ALENDRONATE SODIUM
     Route: 050
  28. ALENDRONATE SODIUM [Concomitant]
     Active Substance: ALENDRONATE SODIUM
  29. ALENDRONIC ACID [Concomitant]
     Active Substance: ALENDRONIC ACID
     Indication: Rheumatoid arthritis
     Route: 050
  30. PREDNISONE [Concomitant]
     Active Substance: PREDNISONE
     Indication: Rheumatoid arthritis
     Route: 050
  31. PREDNISONE [Concomitant]
     Active Substance: PREDNISONE
     Indication: Condition aggravated
  32. ARAVA [Concomitant]
     Active Substance: LEFLUNOMIDE
     Indication: Rheumatoid arthritis
     Route: 050
  33. ARAVA [Concomitant]
     Active Substance: LEFLUNOMIDE
     Route: 050
  34. ARAVA [Concomitant]
     Active Substance: LEFLUNOMIDE
  35. ARAVA [Concomitant]
     Active Substance: LEFLUNOMIDE
  36. ARAVA [Concomitant]
     Active Substance: LEFLUNOMIDE
     Route: 050
  37. ASACOL [Concomitant]
     Active Substance: MESALAMINE
     Indication: Crohn^s disease
  38. ATIVAN [Concomitant]
     Active Substance: LORAZEPAM
     Indication: Rheumatoid arthritis
  39. CAFFEINE [Concomitant]
     Active Substance: CAFFEINE
     Indication: Rheumatoid arthritis
  40. CAFFEINE CITRATE [Concomitant]
     Active Substance: CAFFEINE CITRATE
     Indication: Product used for unknown indication
     Route: 050
  41. CALCIUM [Concomitant]
     Active Substance: CALCIUM
     Indication: Product used for unknown indication
  42. CALCIUM [Concomitant]
     Active Substance: CALCIUM
  43. CALCIUM CARBONATE [Concomitant]
     Active Substance: CALCIUM CARBONATE
     Indication: Product used for unknown indication
  44. CELECOXIB [Concomitant]
     Active Substance: CELECOXIB
     Indication: Rheumatoid arthritis
     Route: 050
  45. CELECOXIB [Concomitant]
     Active Substance: CELECOXIB
     Indication: Off label use
     Route: 050
  46. CELECOXIB [Concomitant]
     Active Substance: CELECOXIB
  47. CELECOXIB [Concomitant]
     Active Substance: CELECOXIB
     Route: 050
  48. CELECOXIB [Concomitant]
     Active Substance: CELECOXIB
  49. CELECOXIB [Concomitant]
     Active Substance: CELECOXIB
     Route: 050
  50. CELECOXIB [Concomitant]
     Active Substance: CELECOXIB
     Route: 050
  51. CETIRIZINE [Concomitant]
     Active Substance: CETIRIZINE HYDROCHLORIDE
     Indication: Rheumatoid arthritis
     Route: 050
  52. CETIRIZINE [Concomitant]
     Active Substance: CETIRIZINE HYDROCHLORIDE
     Indication: Off label use
     Route: 050
  53. CETIRIZINE [Concomitant]
     Active Substance: CETIRIZINE HYDROCHLORIDE
     Route: 050
  54. CHLORAPREP [Concomitant]
     Active Substance: CHLORHEXIDINE GLUCONATE\ISOPROPYL ALCOHOL
     Indication: Rheumatoid arthritis
  55. CHLORAPREP [Concomitant]
     Active Substance: CHLORHEXIDINE GLUCONATE\ISOPROPYL ALCOHOL
     Route: 050
  56. CHLORHEXIDINE [Concomitant]
     Active Substance: CHLORHEXIDINE
     Indication: Rheumatoid arthritis
     Route: 050
  57. CHLORHEXIDINE [Concomitant]
     Active Substance: CHLORHEXIDINE
  58. CHLORHEXIDINE [Concomitant]
     Active Substance: CHLORHEXIDINE
  59. CHOLECALCIFEROL [Concomitant]
     Active Substance: CHOLECALCIFEROL
     Indication: Rheumatoid arthritis
  60. CHOLECALCIFEROL [Concomitant]
     Active Substance: CHOLECALCIFEROL
     Route: 050
  61. CHOLECALCIFEROL [Concomitant]
     Active Substance: CHOLECALCIFEROL
     Route: 050
  62. CIMZIA [Concomitant]
     Active Substance: CERTOLIZUMAB PEGOL
     Indication: Rheumatoid arthritis
     Route: 050
  63. CIMZIA [Concomitant]
     Active Substance: CERTOLIZUMAB PEGOL
     Indication: Psoriasis
     Route: 050
  64. CODEINE [Concomitant]
     Active Substance: CODEINE
     Indication: Rheumatoid arthritis
  65. COSENTYX [Concomitant]
     Active Substance: SECUKINUMAB
     Indication: Rheumatoid arthritis
     Route: 050
  66. COSENTYX [Concomitant]
     Active Substance: SECUKINUMAB
     Indication: Psoriatic arthropathy
     Route: 050
  67. DESOXIMETASONE [Concomitant]
     Active Substance: DESOXIMETASONE
     Indication: Rheumatoid arthritis
  68. DESOXIMETASONE [Concomitant]
     Active Substance: DESOXIMETASONE
     Route: 050
  69. DESOXIMETASONE [Concomitant]
     Active Substance: DESOXIMETASONE
     Route: 050
  70. DESOXIMETASONE [Concomitant]
     Active Substance: DESOXIMETASONE
  71. DESOXIMETASONE [Concomitant]
     Active Substance: DESOXIMETASONE
  72. DESOXIMETASONE [Concomitant]
     Active Substance: DESOXIMETASONE
     Route: 050
  73. DESOXIMETASONE [Concomitant]
     Active Substance: DESOXIMETASONE
     Route: 050
  74. DICLOFENAC POTASSIUM [Concomitant]
     Active Substance: DICLOFENAC POTASSIUM
     Indication: Rheumatoid arthritis
     Route: 050
  75. DICLOFENAC POTASSIUM [Concomitant]
     Active Substance: DICLOFENAC POTASSIUM
     Route: 050
  76. DICLOFENAC SODIUM [Concomitant]
     Active Substance: DICLOFENAC SODIUM
     Indication: Rheumatoid arthritis
     Route: 050
  77. DICLOFENAC SODIUM [Concomitant]
     Active Substance: DICLOFENAC SODIUM
     Route: 050
  78. DICLOFENAC SODIUM [Concomitant]
     Active Substance: DICLOFENAC SODIUM
     Route: 050
  79. DIPHENHYDRAMINE HYDROCHLORIDE [Concomitant]
     Active Substance: DIPHENHYDRAMINE HYDROCHLORIDE
     Indication: Product used for unknown indication
  80. DOXYCYCLINE HYCLATE [Concomitant]
     Active Substance: DOXYCYCLINE HYCLATE
     Indication: Rheumatoid arthritis
     Route: 050
  81. DOXYCYCLINE HYCLATE [Concomitant]
     Active Substance: DOXYCYCLINE HYCLATE
     Route: 050
  82. ENBREL [Concomitant]
     Active Substance: ETANERCEPT
     Indication: Rheumatoid arthritis
     Route: 050
  83. ENBREL [Concomitant]
     Active Substance: ETANERCEPT
     Route: 050
  84. ENBREL [Concomitant]
     Active Substance: ETANERCEPT
     Route: 050
  85. ENBREL [Concomitant]
     Active Substance: ETANERCEPT
     Route: 050
  86. ENBREL [Concomitant]
     Active Substance: ETANERCEPT
     Route: 050
  87. ENBREL [Concomitant]
     Active Substance: ETANERCEPT
     Route: 050
  88. ENBREL [Concomitant]
     Active Substance: ETANERCEPT
  89. ERELZI [Concomitant]
     Active Substance: ETANERCEPT-SZZS
     Indication: Rheumatoid arthritis
     Route: 050
  90. ERGOCALCIFEROL [Concomitant]
     Active Substance: ERGOCALCIFEROL
     Indication: Rheumatoid arthritis
  91. ERYTHROMYCIN [Concomitant]
     Active Substance: ERYTHROMYCIN
     Indication: Product used for unknown indication
  92. FLUMETHASONE PIVALATE [Concomitant]
     Active Substance: FLUMETHASONE PIVALATE
     Indication: Rheumatoid arthritis
  93. FLUOROMETHOLONE [Concomitant]
     Active Substance: FLUOROMETHOLONE
     Indication: Product used for unknown indication
     Route: 050
  94. FOLIC ACID [Concomitant]
     Active Substance: FOLIC ACID
     Indication: Rheumatoid arthritis
  95. FOLIC ACID [Concomitant]
     Active Substance: FOLIC ACID
  96. FOLIC ACID [Concomitant]
     Active Substance: FOLIC ACID
  97. FOLIC ACID [Concomitant]
     Active Substance: FOLIC ACID
  98. FOLIC ACID [Concomitant]
     Active Substance: FOLIC ACID
  99. FOLIC ACID [Concomitant]
     Active Substance: FOLIC ACID
  100. FOLIC ACID [Concomitant]
     Active Substance: FOLIC ACID
  101. FOLIC ACID [Concomitant]
     Active Substance: FOLIC ACID
  102. FOLIC ACID [Concomitant]
     Active Substance: FOLIC ACID
  103. FOSAMAX [Concomitant]
     Active Substance: ALENDRONATE SODIUM
     Indication: Rheumatoid arthritis
  104. FOSAMAX [Concomitant]
     Active Substance: ALENDRONATE SODIUM
     Route: 050
  105. FOSAMAX [Concomitant]
     Active Substance: ALENDRONATE SODIUM
     Route: 050
  106. FOSAMAX [Concomitant]
     Active Substance: ALENDRONATE SODIUM
     Route: 050
  107. FOSAMAX [Concomitant]
     Active Substance: ALENDRONATE SODIUM
     Route: 050
  108. FOSAPREPITANT [Concomitant]
     Active Substance: FOSAPREPITANT
     Indication: Rheumatoid arthritis
  109. GLUCOSAMINE [Concomitant]
     Active Substance: GLUCOSAMINE
     Indication: Rheumatoid arthritis
     Route: 050
  110. HUMIRA [Concomitant]
     Active Substance: ADALIMUMAB
     Indication: Rheumatoid arthritis
     Route: 050
  111. HUMIRA [Concomitant]
     Active Substance: ADALIMUMAB
     Route: 050
  112. HUMIRA [Concomitant]
     Active Substance: ADALIMUMAB
     Route: 050
  113. HUMIRA [Concomitant]
     Active Substance: ADALIMUMAB
     Route: 050
  114. HYALURONIDASE [Concomitant]
     Active Substance: HYALURONIDASE
     Indication: Product used for unknown indication
  115. IMURAN [Concomitant]
     Active Substance: AZATHIOPRINE
     Indication: Rheumatoid arthritis
     Route: 050
  116. INFLIXIMAB [Concomitant]
     Active Substance: INFLIXIMAB
     Indication: Rheumatoid arthritis
  117. ISOPROPYL ALCOHOL [Concomitant]
     Active Substance: ISOPROPYL ALCOHOL
     Indication: Product used for unknown indication
  118. LANSOPRAZOLE [Concomitant]
     Active Substance: LANSOPRAZOLE
     Indication: Rheumatoid arthritis
     Route: 050
  119. LEFLUNOMIDE [Concomitant]
     Active Substance: LEFLUNOMIDE
     Indication: Rheumatoid arthritis
     Route: 050
  120. LISINOPRIL [Concomitant]
     Active Substance: LISINOPRIL
     Indication: Product used for unknown indication
     Route: 050
  121. CLIOQUINOL\FLUMETHASONE [Concomitant]
     Active Substance: CLIOQUINOL\FLUMETHASONE
     Indication: Product used for unknown indication
  122. LORAZEPAM [Concomitant]
     Active Substance: LORAZEPAM
     Indication: Rheumatoid arthritis
  123. MAGNESIUM [Concomitant]
     Active Substance: MAGNESIUM
     Indication: Product used for unknown indication
     Route: 050
  124. FOSAPREPITANT DIMEGLUMINE [Concomitant]
     Active Substance: FOSAPREPITANT DIMEGLUMINE
     Indication: Product used for unknown indication
     Route: 050
  125. MELOXICAM [Concomitant]
     Active Substance: MELOXICAM
     Indication: Product used for unknown indication
  126. MESALAMINE [Concomitant]
     Active Substance: MESALAMINE
     Indication: Crohn^s disease
  127. METHOTREXATE [Concomitant]
     Active Substance: METHOTREXATE
     Indication: Rheumatoid arthritis
  128. METHOTREXATE [Concomitant]
     Active Substance: METHOTREXATE
     Route: 050
  129. METHOTREXATE [Concomitant]
     Active Substance: METHOTREXATE
     Route: 050
  130. METHOTREXATE [Concomitant]
     Active Substance: METHOTREXATE
     Route: 050
  131. METHOTREXATE [Concomitant]
     Active Substance: METHOTREXATE
  132. METHOTREXATE [Concomitant]
     Active Substance: METHOTREXATE
     Route: 050
  133. METHOTREXATE [Concomitant]
     Active Substance: METHOTREXATE
     Route: 050
  134. METHOTREXATE [Concomitant]
     Active Substance: METHOTREXATE
     Route: 050
  135. MORPHINE [Concomitant]
     Active Substance: MORPHINE
     Indication: Rheumatoid arthritis
     Route: 050
  136. MYCOPHENOLATE MOFETIL [Concomitant]
     Active Substance: MYCOPHENOLATE MOFETIL
     Indication: Rheumatoid arthritis
     Route: 050
  137. NAPROXEN SODIUM [Concomitant]
     Active Substance: NAPROXEN SODIUM
     Indication: Rheumatoid arthritis
  138. NAPROXEN SODIUM [Concomitant]
     Active Substance: NAPROXEN SODIUM
  139. OTEZLA [Concomitant]
     Active Substance: APREMILAST
     Indication: Rheumatoid arthritis
  140. OTEZLA [Concomitant]
     Active Substance: APREMILAST
  141. OTEZLA [Concomitant]
     Active Substance: APREMILAST
     Route: 050
  142. PANTOPRAZOLE SODIUM [Concomitant]
     Active Substance: PANTOPRAZOLE SODIUM
     Indication: Rheumatoid arthritis
  143. PANTOPRAZOLE SODIUM [Concomitant]
     Active Substance: PANTOPRAZOLE SODIUM
     Route: 050
  144. PANTOPRAZOLE SODIUM [Concomitant]
     Active Substance: PANTOPRAZOLE SODIUM
     Route: 050
  145. PANTOPRAZOLE SODIUM [Concomitant]
     Active Substance: PANTOPRAZOLE SODIUM
     Route: 050
  146. PARA-AMINOSALICYLIC ACID [Concomitant]
     Active Substance: AMINOSALICYLIC ACID
     Indication: Product used for unknown indication
  147. PERCOCET [Concomitant]
     Active Substance: ACETAMINOPHEN\OXYCODONE HYDROCHLORIDE
     Indication: Rheumatoid arthritis
     Route: 050
  148. PERCOCET [Concomitant]
     Active Substance: ACETAMINOPHEN\OXYCODONE HYDROCHLORIDE
     Route: 050
  149. PHTHALYLSULFATHIAZOLE [Concomitant]
     Active Substance: PHTHALYLSULFATHIAZOLE
     Indication: Rheumatoid arthritis
     Route: 050
  150. PHTHALYLSULFATHIAZOLE [Concomitant]
     Active Substance: PHTHALYLSULFATHIAZOLE
     Route: 050
  151. PHTHALYLSULFATHIAZOLE [Concomitant]
     Active Substance: PHTHALYLSULFATHIAZOLE
     Route: 050
  152. PHTHALYLSULFATHIAZOLE [Concomitant]
     Active Substance: PHTHALYLSULFATHIAZOLE
     Route: 050
  153. PHTHALYLSULFATHIAZOLE [Concomitant]
     Active Substance: PHTHALYLSULFATHIAZOLE
     Route: 050
  154. HYDROXYCHLOROQUINE DIPHOSPHATE [Concomitant]
     Active Substance: HYDROXYCHLOROQUINE DIPHOSPHATE
     Indication: Rheumatoid arthritis
     Route: 050
  155. HYDROXYCHLOROQUINE DIPHOSPHATE [Concomitant]
     Active Substance: HYDROXYCHLOROQUINE DIPHOSPHATE
  156. PREDNISONE [Concomitant]
     Active Substance: PREDNISONE
     Indication: Rheumatoid arthritis
     Route: 050
  157. PREDNISONE [Concomitant]
     Active Substance: PREDNISONE
     Indication: Condition aggravated
     Route: 050
  158. PREDNISONE [Concomitant]
     Active Substance: PREDNISONE
     Indication: Arthralgia
     Route: 050
  159. PREDNISONE [Concomitant]
     Active Substance: PREDNISONE
     Route: 050
  160. PREDNISONE [Concomitant]
     Active Substance: PREDNISONE
     Route: 050
  161. PREGABALIN [Concomitant]
     Active Substance: PREGABALIN
     Indication: Product used for unknown indication
     Route: 050
  162. QUETIAPINE FUMARATE [Concomitant]
     Active Substance: QUETIAPINE FUMARATE
     Indication: Product used for unknown indication
  163. RAMIPRIL [Concomitant]
     Active Substance: RAMIPRIL
     Indication: Product used for unknown indication
     Route: 050
  164. CETIRIZINE HYDROCHLORIDE [Concomitant]
     Active Substance: CETIRIZINE HYDROCHLORIDE
     Indication: Rheumatoid arthritis
     Route: 050
  165. CETIRIZINE HYDROCHLORIDE [Concomitant]
     Active Substance: CETIRIZINE HYDROCHLORIDE
     Indication: Off label use
     Route: 050
  166. CETIRIZINE HYDROCHLORIDE [Concomitant]
     Active Substance: CETIRIZINE HYDROCHLORIDE
     Route: 050
  167. CETIRIZINE HYDROCHLORIDE [Concomitant]
     Active Substance: CETIRIZINE HYDROCHLORIDE
     Route: 050
  168. RITUXIMAB [Concomitant]
     Active Substance: RITUXIMAB
     Indication: Rheumatoid arthritis
     Route: 050
  169. RITUXIMAB [Concomitant]
     Active Substance: RITUXIMAB
     Route: 050
  170. SULFASALAZINE [Concomitant]
     Active Substance: SULFASALAZINE
     Indication: Product used for unknown indication
  171. SULFASALAZINE [Concomitant]
     Active Substance: SULFASALAZINE
  172. ALBUTEROL [Concomitant]
     Active Substance: ALBUTEROL
     Indication: Product used for unknown indication
  173. ALBUTEROL [Concomitant]
     Active Substance: ALBUTEROL
  174. SIMPONI [Concomitant]
     Active Substance: GOLIMUMAB
     Indication: Rheumatoid arthritis
     Route: 050
  175. SIMPONI [Concomitant]
     Active Substance: GOLIMUMAB
     Route: 050
  176. SIMPONI [Concomitant]
     Active Substance: GOLIMUMAB
     Route: 050
  177. STELARA [Concomitant]
     Active Substance: USTEKINUMAB
     Indication: Product used for unknown indication
     Route: 050
  178. SULFASALAZINE [Concomitant]
     Active Substance: SULFASALAZINE
     Indication: Rheumatoid arthritis
     Route: 050
  179. SULFASALAZINE [Concomitant]
     Active Substance: SULFASALAZINE
     Route: 050
  180. SULFASALAZINE [Concomitant]
     Active Substance: SULFASALAZINE
     Route: 050
  181. SULFASALAZINE [Concomitant]
     Active Substance: SULFASALAZINE
     Route: 050
  182. SULFASALAZINE [Concomitant]
     Active Substance: SULFASALAZINE
  183. SULFASALAZINE [Concomitant]
     Active Substance: SULFASALAZINE
     Route: 050
  184. SULFASALAZINE [Concomitant]
     Active Substance: SULFASALAZINE
     Route: 050
  185. SULFASALAZINE [Concomitant]
     Active Substance: SULFASALAZINE
  186. TOFACITINIB CITRATE [Concomitant]
     Active Substance: TOFACITINIB CITRATE
     Indication: Rheumatoid arthritis
  187. TUMS [Concomitant]
     Active Substance: CALCIUM CARBONATE
     Indication: Product used for unknown indication
  188. TUMS [Concomitant]
     Active Substance: CALCIUM CARBONATE
  189. VITAMIN C [Concomitant]
     Active Substance: ASCORBIC ACID
     Indication: Product used for unknown indication
  190. XELJANZ [Concomitant]
     Active Substance: TOFACITINIB CITRATE
     Indication: Rheumatoid arthritis
     Route: 050
  191. ZESTRIL [Concomitant]
     Active Substance: LISINOPRIL
     Indication: Product used for unknown indication
     Route: 050

REACTIONS (1)
  - Death [Fatal]
